FAERS Safety Report 5472894-2 (Version None)
Quarter: 2007Q4

REPORT INFORMATION
  Report Type: 
  Country: None (occurrence: None)
  Receive Date: 20071001
  Receipt Date: 20070926
  Transmission Date: 20080405
  Serious: Yes (Hospitalization)
  Sender: FDA-Public Use
  Company Number: B0432303A

PATIENT
  Age: 1 Year
  Sex: Male
  Weight: 9 kg

DRUGS (1)
  1. PAXIL [Suspect]
     Indication: ACCIDENTAL EXPOSURE
     Dosage: 40MG PER DAY
     Route: 048
     Dates: start: 20060723, end: 20060723

REACTIONS (3)
  - ACCIDENTAL DRUG INTAKE BY CHILD [None]
  - DEPRESSED LEVEL OF CONSCIOUSNESS [None]
  - DRUG TOXICITY [None]
